FAERS Safety Report 18548609 (Version 1)
Quarter: 2020Q4

REPORT INFORMATION
  Report Type: Spontaneous
  Country: US (occurrence: US)
  Receive Date: 20201126
  Receipt Date: 20201126
  Transmission Date: 20210114
  Serious: Yes (Life-Threatening, Hospitalization, Other)
  Sender: FDA-Public Use
  Company Number: US-HIKMA PHARMACEUTICALS USA INC.-US-H14001-20-05320

PATIENT

DRUGS (3)
  1. VINCRISTINE [Suspect]
     Active Substance: VINCRISTINE
     Indication: CHEMOTHERAPY
     Route: 042
  2. DOXORUBICIN [Suspect]
     Active Substance: DOXORUBICIN
     Indication: CHEMOTHERAPY
     Route: 042
  3. CRIZOTINIB [Suspect]
     Active Substance: CRIZOTINIB
     Indication: CHEMOTHERAPY
     Route: 048

REACTIONS (3)
  - Electrocardiogram QT prolonged [Unknown]
  - Dehydration [Unknown]
  - Toxicity to various agents [Unknown]
